FAERS Safety Report 8371235-0 (Version None)
Quarter: 2012Q2

REPORT INFORMATION
  Report Type: 
  Country: None (occurrence: None)
  Receive Date: 20120517
  Receipt Date: 20120503
  Transmission Date: 20120825
  Serious: Yes (Hospitalization, Other)
  Sender: FDA-Public Use
  Company Number: CIP11001751

PATIENT
  Age: 63 Year
  Sex: Female

DRUGS (52)
  1. VIOXX [Concomitant]
  2. ROXICET [Concomitant]
  3. LEVAQUIN [Concomitant]
  4. PROTONIX [Concomitant]
  5. ETHEDENT (SODIUM FLUORIDE) [Concomitant]
  6. LOPROX (CICLOPIROX OLAMINE) [Concomitant]
  7. ZOVIRAX /00587301/ (ACICLOVIR) [Concomitant]
  8. ZITHROMAX [Concomitant]
  9. ACTONEL [Suspect]
     Dosage: 30 MG, ORAL
     Route: 048
     Dates: start: 20021212, end: 20031006
  10. ERY-TAB (ERYTHROMYCIN) [Concomitant]
  11. DIPROLENE (BETAMETHASONE DIPROPIONATE) [Concomitant]
  12. BEXTRA /01401501/ (VALDECOXIB) [Concomitant]
  13. NABUMETONE [Concomitant]
  14. SKELAXIN /00611501/ (METAXALONE) [Concomitant]
  15. GLUCOSAMINE (GLUCOSAMINE) [Concomitant]
  16. NAPROXEN (ALEVE) [Concomitant]
  17. ASPIRIN [Concomitant]
  18. MULTIVITAMIN /01229101/ (VITAMINS NOS) [Concomitant]
  19. HYDROCODONE W/APAP (HYDROCODONE, PARACETAMOL) [Concomitant]
  20. HYDROXYZINE [Concomitant]
  21. CLOBETASOL (COLBETASOL) [Concomitant]
  22. NITROFURANTOIN [Concomitant]
  23. XALATAN /01297301/ (LATANOPROST) [Concomitant]
  24. FLUCONAZOLE [Concomitant]
  25. PROMETHAZINE - CODEINT /01129901/ (CODEINE PHOSPHATE, PROMETHAZINE HYD [Concomitant]
  26. CELEBREX [Concomitant]
  27. ACTONEL [Suspect]
     Dosage: 35 MG, ONCE A WEEK, ORAL
     Route: 048
     Dates: start: 20021021, end: 20080301
  28. CIPRO [Concomitant]
  29. ALUMINUM CHLORIDE (ALUMINUM CHLORIDE) [Concomitant]
  30. FLUOXETINE [Concomitant]
  31. METHYLPREDNISOLONE [Concomitant]
  32. ACIPHEX [Concomitant]
  33. LIDODERM [Concomitant]
  34. DICLOFENAC SODIUM [Concomitant]
  35. CRANBERRY /01512301/ (VACCINIUM MACROCARPON) [Concomitant]
  36. TRIAMCINOLONE [Concomitant]
  37. LIPITOR [Concomitant]
  38. LOVENOX [Concomitant]
  39. TRAMADOL/APAP (PARACETAMOL, TRAMADOL HYDROCHLORIDE) [Concomitant]
  40. FOSAMAX [Suspect]
     Indication: OSTEOPOROSIS
     Dosage: 70 MG WEEKLY, ORAL, 10 MG, ORAL
     Route: 048
     Dates: start: 19991119, end: 20020806
  41. FOSAMAX [Suspect]
     Indication: OSTEOPOROSIS
     Dosage: 70 MG WEEKLY, ORAL, 10 MG, ORAL
     Route: 048
     Dates: start: 20001213
  42. TRAMADOL HCL [Concomitant]
  43. NASONEX [Concomitant]
  44. CLOTRIMAZOLE W/BETAMETHASONE DIPROPIONAT (BETAMETHASONE DIPROPIONATE, [Concomitant]
  45. ZOCOR [Concomitant]
  46. OXYCODONE AND ACETAMINOPHEN [Concomitant]
  47. NEXIUM /01479303 (ESOMEPRAZOLE SODIUM) [Concomitant]
  48. CRESTOR [Concomitant]
  49. PAXIL [Concomitant]
  50. ACULAR /01001802/ (LETOROLAC TROMETHAMINE) [Concomitant]
  51. MELOXICAM [Concomitant]
  52. CALCIUM CARBONATE [Concomitant]

REACTIONS (18)
  - STRESS FRACTURE [None]
  - FRACTURE DISPLACEMENT [None]
  - SPINAL COMPRESSION FRACTURE [None]
  - PARAESTHESIA [None]
  - FOOT FRACTURE [None]
  - OSTEOARTHRITIS [None]
  - RADICULOPATHY [None]
  - SYNOVIAL CYST [None]
  - FRACTURE NONUNION [None]
  - PATHOLOGICAL FRACTURE [None]
  - METASTATIC NEOPLASM [None]
  - OSTEONECROSIS [None]
  - BONE CALLUS EXCESSIVE [None]
  - BUNION [None]
  - IMPAIRED HEALING [None]
  - FEMUR FRACTURE [None]
  - FALL [None]
  - VERTEBRAL FORAMINAL STENOSIS [None]
